FAERS Safety Report 5874904-7 (Version None)
Quarter: 2008Q3

REPORT INFORMATION
  Report Type: 
  Country: None (occurrence: None)
  Receive Date: 20080904
  Receipt Date: 20080815
  Transmission Date: 20090109
  Serious: Yes (Other)
  Sender: FDA-Public Use
  Company Number: 2008-00929FE

PATIENT
  Age: 16 Year
  Sex: Female

DRUGS (2)
  1. OCTOSTIM (OCTOSTIM) (DESMOPRESSIN ACETATE) [Suspect]
     Indication: VON WILLEBRAND'S DISEASE
     Dosage: 19.5 MCG
     Dates: start: 20080615, end: 20080615
  2. TRANEXAMIC ACID [Concomitant]

REACTIONS (9)
  - ANAPHYLACTIC REACTION [None]
  - ANXIETY [None]
  - DYSPNOEA [None]
  - FEELING ABNORMAL [None]
  - FLUSHING [None]
  - MUSCLE SPASMS [None]
  - NASAL CONGESTION [None]
  - PAIN [None]
  - PARAESTHESIA [None]
